FAERS Safety Report 20969096 (Version 1)
Quarter: 2022Q2

REPORT INFORMATION
  Report Type: Spontaneous
  Country: US (occurrence: US)
  Receive Date: 20220616
  Receipt Date: 20220616
  Transmission Date: 20220721
  Serious: Yes (Other)
  Sender: FDA-Public Use
  Company Number: US-BRISTOL-MYERS SQUIBB COMPANY-2022-055896

PATIENT
  Age: 53 Year
  Sex: Male
  Weight: 163.7 kg

DRUGS (4)
  1. ELIQUIS [Suspect]
     Active Substance: APIXABAN
     Indication: Coagulopathy
     Route: 065
     Dates: start: 2018
  2. REVLIMID [Suspect]
     Active Substance: LENALIDOMIDE
     Indication: Product used for unknown indication
     Dosage: DAILY FOR 14 DAYS AND A 7-DAY BREAK
     Route: 065
     Dates: start: 20220603
  3. COVID-19 VACCINE NOS [Suspect]
     Active Substance: COVID-19 VACCINE NOS
     Indication: COVID-19 immunisation
     Route: 065
  4. ZOLOFT [Concomitant]
     Active Substance: SERTRALINE HYDROCHLORIDE
     Indication: Product used for unknown indication

REACTIONS (10)
  - Urine abnormality [Unknown]
  - Bone cancer [Unknown]
  - Haematological malignancy [Unknown]
  - Memory impairment [Unknown]
  - Stress [Unknown]
  - Product dose omission issue [Unknown]
  - Arthritis [Unknown]
  - Neuropathy peripheral [Unknown]
  - Intentional product use issue [Unknown]
  - Protein urine present [Unknown]

NARRATIVE: CASE EVENT DATE: 20220201
